FAERS Safety Report 9699026 (Version 1)
Quarter: 2013Q4

REPORT INFORMATION
  Report Type: Spontaneous
  Country: US (occurrence: US)
  Receive Date: 20131120
  Receipt Date: 20131120
  Transmission Date: 20140711
  Serious: Yes (Hospitalization)
  Sender: FDA-Public Use
  Company Number: US-FRI-1000051172

PATIENT
  Age: 76 Year
  Sex: Male

DRUGS (1)
  1. NAMENDA XR [Suspect]
     Dosage: 28 MG
     Dates: start: 2013, end: 2013

REACTIONS (1)
  - Intestinal obstruction [Unknown]
